FAERS Safety Report 18028476 (Version 2)
Quarter: 2020Q3

REPORT INFORMATION
  Report Type: Spontaneous
  Country: FR (occurrence: FR)
  Receive Date: 20200715
  Receipt Date: 20200803
  Transmission Date: 20201103
  Serious: Yes (Other)
  Sender: FDA-Public Use
  Company Number: FR-PFIZER INC-2020263693

PATIENT
  Age: 69 Year
  Sex: Male
  Weight: 93 kg

DRUGS (7)
  1. LEVOTHYROX [Concomitant]
     Active Substance: LEVOTHYROXINE
     Dosage: UNK
     Route: 048
  2. FUROSEMIDE. [Concomitant]
     Active Substance: FUROSEMIDE
     Indication: HYPERTENSION
     Dosage: UNK
     Route: 048
  3. DALACINE [Suspect]
     Active Substance: CLINDAMYCIN
     Indication: ANTIBIOTIC PROPHYLAXIS
     Dosage: UNK
     Route: 048
     Dates: start: 20200312, end: 20200407
  4. LEVOFLOXACIN HEMIHYDRATE [Suspect]
     Active Substance: LEVOFLOXACIN
     Indication: INFECTION PROPHYLAXIS
     Dosage: 750 MG, 1X/DAY
     Route: 048
     Dates: start: 20200312, end: 20200514
  5. FUCIDINE [FUSIDIC ACID] [Suspect]
     Active Substance: FUSIDIC ACID
     Indication: ANTIBIOTIC PROPHYLAXIS
     Dosage: 1500 MG, 1X/DAY
     Route: 048
     Dates: start: 20200421, end: 20200514
  6. ATACAND [Concomitant]
     Active Substance: CANDESARTAN CILEXETIL
     Dosage: UNK
     Route: 048
     Dates: end: 20200514
  7. RAMIPRIL. [Concomitant]
     Active Substance: RAMIPRIL
     Indication: HYPERTENSION
     Dosage: UNK
     Route: 048
     Dates: end: 20200514

REACTIONS (3)
  - Diarrhoea [Recovering/Resolving]
  - Rash [Recovered/Resolved]
  - Prerenal failure [Recovering/Resolving]

NARRATIVE: CASE EVENT DATE: 20200312
